FAERS Safety Report 19165119 (Version 4)
Quarter: 2021Q4

REPORT INFORMATION
  Report Type: Spontaneous
  Country: FR (occurrence: FR)
  Receive Date: 20210421
  Receipt Date: 20211014
  Transmission Date: 20220303
  Serious: Yes (Other)
  Sender: FDA-Public Use
  Company Number: FR-GRUNENTHAL-2021-263304

PATIENT
  Age: 40 Year
  Sex: Female

DRUGS (4)
  1. TRAMADOL [Suspect]
     Active Substance: TRAMADOL
     Indication: Bladder pain
     Dosage: 50 MILLIGRAM, QH, 10 TO 12 PER DAY
     Route: 048
     Dates: start: 2013
  2. TRAMADOL [Suspect]
     Active Substance: TRAMADOL
     Indication: Bladder pain
     Dosage: UNK
     Route: 065
  3. TRAMADOL [Suspect]
     Active Substance: TRAMADOL
     Dosage: 12 DOSAGE FORM, QD
     Route: 065
  4. BROMAZEPAM [Concomitant]
     Active Substance: BROMAZEPAM
     Indication: Anxiety
     Dosage: UNK

REACTIONS (8)
  - Hyperaesthesia [Unknown]
  - Stillbirth [Unknown]
  - Intentional product misuse [Unknown]
  - Drug dependence [Unknown]
  - Withdrawal syndrome [Unknown]
  - Drug abuse [Recovered/Resolved]
  - Intentional overdose [Unknown]
  - Maternal exposure during pregnancy [Recovered/Resolved]
